FAERS Safety Report 24736577 (Version 2)
Quarter: 2025Q1

REPORT INFORMATION
  Report Type: Report from Study
  Country: JP (occurrence: JP)
  Receive Date: 20241216
  Receipt Date: 20250131
  Transmission Date: 20250409
  Serious: Yes (Hospitalization)
  Sender: TAKEDA
  Company Number: JP-TAKEDA-2024TJP014882

PATIENT
  Age: 51 Year
  Sex: Male
  Weight: 71.5 kg

DRUGS (10)
  1. LANADELUMAB [Suspect]
     Active Substance: LANADELUMAB
     Indication: Hereditary angioedema
     Dates: start: 20230810, end: 20240321
  2. LANADELUMAB [Suspect]
     Active Substance: LANADELUMAB
  3. FIRAZYR [Concomitant]
     Active Substance: ICATIBANT ACETATE
     Indication: Hereditary angioedema
     Dates: start: 20231031, end: 20231031
  4. FIRAZYR [Concomitant]
     Active Substance: ICATIBANT ACETATE
     Dates: start: 20240101, end: 20240101
  5. FIRAZYR [Concomitant]
     Active Substance: ICATIBANT ACETATE
     Dates: start: 20240110, end: 20240110
  6. FIRAZYR [Concomitant]
     Active Substance: ICATIBANT ACETATE
     Dosage: UNK, BID
     Dates: start: 20240327, end: 20240327
  7. FIRAZYR [Concomitant]
     Active Substance: ICATIBANT ACETATE
  8. XARELTO [Concomitant]
     Active Substance: RIVAROXABAN
     Dates: start: 20180719, end: 20180808
  9. XARELTO [Concomitant]
     Active Substance: RIVAROXABAN
  10. TRANSAMIN [Concomitant]
     Active Substance: TRANEXAMIC ACID
     Indication: Prophylaxis

REACTIONS (6)
  - Hereditary angioedema [Recovered/Resolved]
  - Hereditary angioedema [Recovered/Resolved]
  - Dental caries [Unknown]
  - Liver disorder [Unknown]
  - Hereditary angioedema [Recovered/Resolved]
  - Hereditary angioedema [Recovered/Resolved]

NARRATIVE: CASE EVENT DATE: 20231031
